FAERS Safety Report 9779980 (Version 1)
Quarter: 2013Q4

REPORT INFORMATION
  Report Type: Spontaneous
  Country: US (occurrence: US)
  Receive Date: 20131223
  Receipt Date: 20131223
  Transmission Date: 20140711
  Serious: Yes (Other)
  Sender: FDA-Public Use
  Company Number: US-PFIZER INC-2013364098

PATIENT
  Age: 47 Year
  Sex: Female

DRUGS (7)
  1. HYDROXYZINE HCL [Suspect]
     Dosage: 25 MG
  2. HYDROXYZINE HCL [Suspect]
     Dosage: 10MG/ML
  3. DOXEPIN HCL [Suspect]
     Dosage: 10MG/ML
  4. LORATADINE [Suspect]
     Dosage: 5MG/ML
  5. CETIRIZINE [Suspect]
     Dosage: 1MG/ML
  6. LEVOCETIRIZINE [Suspect]
     Dosage: 2.5MG/ML
  7. FEXOFENADINE [Suspect]
     Dosage: 30MG/ML

REACTIONS (8)
  - Anaphylactic reaction [Unknown]
  - Dyspnoea [Unknown]
  - Bronchospasm [Recovering/Resolving]
  - Cough [Recovering/Resolving]
  - Eosinophilia [Unknown]
  - Pruritus generalised [Recovering/Resolving]
  - Eczema [Unknown]
  - Nasal oedema [Unknown]
